FAERS Safety Report 5351841-8 (Version None)
Quarter: 2007Q2

REPORT INFORMATION
  Report Type: 
  Country: None (occurrence: None)
  Receive Date: 20070609
  Receipt Date: 20070608
  Transmission Date: 20071010
  Serious: Yes (Life-Threatening, Hospitalization)
  Sender: FDA-Public Use
  Company Number: FR-ALLERGAN-0705634US

PATIENT
  Sex: Female
  Weight: 69 kg

DRUGS (5)
  1. BOTOX 100 UNITS [Suspect]
     Indication: HYPERTONIC BLADDER
     Dosage: 300 UNITS, SINGLE
     Route: 043
     Dates: start: 20070529, end: 20070529
  2. XYLOCAINE [Suspect]
     Indication: LOCAL ANAESTHESIA
     Dosage: UNK, UNK
     Route: 061
     Dates: start: 20070529, end: 20070529
  3. DIPRIVAN [Suspect]
     Indication: GENERAL ANAESTHESIA
     Dosage: UNK, UNK
     Route: 042
     Dates: start: 20070529, end: 20070529
  4. PROFENID [Suspect]
     Indication: ANALGESIC EFFECT
     Dosage: UNK, UNK
     Route: 042
     Dates: start: 20070529, end: 20070529
  5. PERFALGAN [Suspect]
     Indication: ANALGESIC EFFECT
     Route: 042
     Dates: start: 20070529, end: 20070529

REACTIONS (1)
  - ANAPHYLACTIC SHOCK [None]
